FAERS Safety Report 4398953-3 (Version None)
Quarter: 2004Q3

REPORT INFORMATION
  Report Type: 
  Country: None (occurrence: None)
  Receive Date: 20040712
  Receipt Date: 20040618
  Transmission Date: 20050211
  Serious: Yes (Death)
  Sender: FDA-Public Use
  Company Number: US_0406103781

PATIENT
  Age: 54 Year
  Sex: Male

DRUGS (1)
  1. OLANZAPINE [Suspect]
     Indication: PSYCHOTIC DISORDER
     Dosage: 15 MG AT BEDTIME
     Dates: start: 20031211, end: 20040330

REACTIONS (3)
  - BREATH ODOUR [None]
  - DIABETIC COMA [None]
  - REFUSAL OF TREATMENT BY PATIENT [None]
